FAERS Safety Report 22535530 (Version 1)
Quarter: 2023Q2

REPORT INFORMATION
  Report Type: Spontaneous
  Country: BE (occurrence: BE)
  Receive Date: 20230608
  Receipt Date: 20230608
  Transmission Date: 20230721
  Serious: Yes (Other)
  Sender: FDA-Public Use
  Company Number: BE-ZAMBON SWITZERLAND LTD.-2023BE000033

PATIENT

DRUGS (2)
  1. FOSFOMYCIN TROMETHAMINE [Suspect]
     Active Substance: FOSFOMYCIN TROMETHAMINE
     Indication: Urinary tract infection
     Dosage: 3 G, SINGLE
     Route: 048
     Dates: start: 20230113, end: 20230113
  2. FOSFOMYCIN TROMETHAMINE [Suspect]
     Active Substance: FOSFOMYCIN TROMETHAMINE
     Dosage: 3 G, SINGLE
     Route: 048
     Dates: start: 20230524, end: 20230524

REACTIONS (3)
  - Renal pain [Recovered/Resolved]
  - Renal impairment [Not Recovered/Not Resolved]
  - Urethral stenosis [Recovered/Resolved]

NARRATIVE: CASE EVENT DATE: 20230113
